FAERS Safety Report 20385173 (Version 2)
Quarter: 2022Q4

REPORT INFORMATION
  Report Type: Spontaneous
  Country: US (occurrence: US)
  Receive Date: 20220127
  Receipt Date: 20221103
  Transmission Date: 20230113
  Serious: Yes (Other)
  Sender: FDA-Public Use
  Company Number: US-JNJFOC-20220134336

PATIENT
  Age: 20 Year
  Sex: Female

DRUGS (4)
  1. ELMIRON [Suspect]
     Active Substance: PENTOSAN POLYSULFATE SODIUM
     Indication: Cystitis interstitial
     Route: 048
     Dates: start: 199610, end: 2004
  2. ELMIRON [Suspect]
     Active Substance: PENTOSAN POLYSULFATE SODIUM
     Route: 048
  3. HYDROXYCHLOROQUINE DIPHOSPHATE [Suspect]
     Active Substance: HYDROXYCHLOROQUINE DIPHOSPHATE
     Indication: Arthritis
     Dosage: VARYING DOSES OF 400 MG AND 200 MG
     Route: 065
     Dates: end: 2008
  4. LITHIUM [Concomitant]
     Active Substance: LITHIUM
     Indication: Bipolar disorder
     Dates: start: 1997

REACTIONS (4)
  - Retinal dystrophy [Not Recovered/Not Resolved]
  - Maculopathy [Unknown]
  - Retinal pigment epitheliopathy [Unknown]
  - Off label use [Unknown]

NARRATIVE: CASE EVENT DATE: 19961001
